FAERS Safety Report 8976935 (Version 2)
Quarter: 2013Q1

REPORT INFORMATION
  Report Type: Spontaneous
  Country: US (occurrence: US)
  Receive Date: 20121220
  Receipt Date: 20130212
  Transmission Date: 20140127
  Serious: Yes (Death)
  Sender: FDA-Public Use
  Company Number: US-BAYER-2012-131876

PATIENT
  Age: 23 Year
  Sex: Female
  Weight: 68.03 kg

DRUGS (7)
  1. YASMIN [Suspect]
  2. PAPAVERINE [Concomitant]
  3. SINGULAIR [Concomitant]
  4. PROZAC [Concomitant]
  5. XANAX [Concomitant]
  6. ALBUTEROL [Concomitant]
  7. MEPROBAMATE [Concomitant]

REACTIONS (8)
  - Pulmonary embolism [Fatal]
  - Deep vein thrombosis [Fatal]
  - Headache [None]
  - Dizziness [None]
  - Diarrhoea [None]
  - Vomiting [None]
  - Pain in extremity [None]
  - Depression [None]
